FAERS Safety Report 7280771-X (Version None)
Quarter: 2011Q1

REPORT INFORMATION
  Report Type: 
  Country: None (occurrence: None)
  Receive Date: 20110126
  Receipt Date: 20101231
  Transmission Date: 20110831
  Serious: Yes (Death)
  Sender: FDA-Public Use
  Company Number: AUR-APL-2011-00107

PATIENT
  Age: 17 Year
  Sex: Male

DRUGS (4)
  1. METAXALONE [Suspect]
     Dosage: ORAL
     Route: 048
  2. BUPROPION HCL [Suspect]
     Dosage: ORAL
     Route: 048
  3. RISPERDONE [Suspect]
     Dosage: ORAL
     Route: 048
  4. TRAMADOL HCL [Suspect]
     Dosage: ORAL
     Route: 048

REACTIONS (5)
  - RESPIRATORY ARREST [None]
  - TOXICITY TO VARIOUS AGENTS [None]
  - INTENTIONAL DRUG MISUSE [None]
  - CARDIAC ARREST [None]
  - COMPLETED SUICIDE [None]
